FAERS Safety Report 6154248-9 (Version None)
Quarter: 2009Q2

REPORT INFORMATION
  Report Type: 
  Country: None (occurrence: None)
  Receive Date: 20090410
  Receipt Date: 20090407
  Transmission Date: 20091009
  Serious: Yes (Hospitalization)
  Sender: FDA-Public Use
  Company Number: 09GB000595

PATIENT
  Age: 77 Year
  Sex: Female

DRUGS (8)
  1. IBUPROFEN [Suspect]
     Indication: ANALGESIA
     Dosage: 400 MG, ORAL
     Route: 048
     Dates: start: 20080408, end: 20090316
  2. ASPIRIN [Suspect]
     Indication: BLOOD PRESSURE INCREASED
     Dosage: 75 MG, ORAL
     Route: 048
     Dates: start: 20070801
  3. CORACTEN (NIFEDIPINE) [Concomitant]
  4. GAVISCON [Concomitant]
  5. LEVOTHYROXINE SODIUM [Concomitant]
  6. OMEPRAZOLE [Concomitant]
  7. QUININE SULPHATE (QUININE SULFATE) [Concomitant]
  8. SIMVASTATIN [Concomitant]

REACTIONS (1)
  - GASTROINTESTINAL HAEMORRHAGE [None]
